FAERS Safety Report 6896392-4 (Version None)
Quarter: 2010Q3

REPORT INFORMATION
  Report Type: 
  Country: None (occurrence: None)
  Receive Date: 20100802
  Receipt Date: 20081230
  Transmission Date: 20110219
  Serious: No
  Sender: FDA-Public Use
  Company Number: US-PFIZER INC-2008161293

PATIENT
  Sex: Female
  Weight: 63.5 kg

DRUGS (2)
  1. NORVASC [Suspect]
     Indication: ARRHYTHMIA
     Dosage: 2.5 MG, 1X/DAY
     Route: 048
     Dates: start: 19890101
  2. TENORMIN [Concomitant]
     Dosage: UNK

REACTIONS (1)
  - BIOPSY BREAST ABNORMAL [None]
